FAERS Safety Report 14195440 (Version 2)
Quarter: 2017Q4

REPORT INFORMATION
  Report Type: Spontaneous
  Country: US (occurrence: US)
  Receive Date: 20171116
  Receipt Date: 20171214
  Transmission Date: 20180321
  Serious: Yes (Other)
  Sender: FDA-Public Use
  Company Number: US-SAOL THERAPEUTICS-2017SAO01541

PATIENT
  Age: 66 Year
  Sex: Female

DRUGS (2)
  1. LIORESAL [Suspect]
     Active Substance: BACLOFEN
     Dosage: 160 ?G, \DAY
     Route: 037
     Dates: start: 201402
  2. INFAMORPH [Suspect]
     Active Substance: MORPHINE
     Dosage: 6 MG, \DAY
     Route: 037

REACTIONS (7)
  - Torticollis [Unknown]
  - Back pain [Unknown]
  - Device malfunction [Unknown]
  - Pain [Unknown]
  - Off label use [Unknown]
  - Malaise [Unknown]
  - Complication associated with device [Unknown]

NARRATIVE: CASE EVENT DATE: 2017
